FAERS Safety Report 7126490-1 (Version None)
Quarter: 2010Q4

REPORT INFORMATION
  Report Type: 
  Country: None (occurrence: None)
  Receive Date: 20101129
  Receipt Date: 20101102
  Transmission Date: 20110411
  Serious: Yes (Death)
  Sender: FDA-Public Use
  Company Number: BE-ROCHE-743958

PATIENT
  Sex: Female
  Weight: 84.5 kg

DRUGS (3)
  1. BEVACIZUMAB [Suspect]
     Dosage: 10 UNK, 2/MONTH
     Route: 042
     Dates: start: 20091223
  2. PACLITAXEL [Suspect]
     Dosage: 90 UNK, 3/MONTH
     Route: 042
     Dates: start: 20091125, end: 20100203
  3. GDC-0941 [Suspect]
     Dosage: 60 UNK, QD
     Route: 048
     Dates: start: 20091124, end: 20100209

REACTIONS (1)
  - LEFT VENTRICULAR DYSFUNCTION [None]
